FAERS Safety Report 18738845 (Version 1)
Quarter: 2021Q1

REPORT INFORMATION
  Report Type: Spontaneous
  Country: US (occurrence: US)
  Receive Date: 20210114
  Receipt Date: 20210114
  Transmission Date: 20210419
  Serious: No
  Sender: FDA-Public Use
  Company Number: US-TEVA-2021-US-1868522

PATIENT
  Age: 63 Year
  Sex: Female

DRUGS (11)
  1. LINZESS ORAL CAPSULE 145 MCG [Concomitant]
     Route: 048
  2. TRIFLUOPERAZINE HCL ORAL TABLET 5 MG [Concomitant]
     Route: 048
  3. FAMOTIDINE ORAL TABLET 20 MG [Concomitant]
     Route: 048
  4. BUTALBITEL?ACETAMINOPHEN ORAL TABLET 25?325 MG [Concomitant]
     Route: 048
  5. HYDROCHLOROTHIAZIDE ORAL TABLET 25 MG [Concomitant]
     Route: 048
  6. BENZTROPINE MESYLATE ORAL TABLET 2 MG [Concomitant]
     Route: 048
  7. AUSTEDO [Suspect]
     Active Substance: DEUTETRABENAZINE
     Indication: TARDIVE DYSKINESIA
     Dosage: 12 MILLIGRAM DAILY;
     Dates: start: 20201216, end: 20210104
  8. AMLODIPINE BESYLATE ORAL TABLET 5 MG [Concomitant]
     Route: 048
  9. MECLIZINE HCL ORAL TABLET 25 MG [Concomitant]
     Route: 048
  10. MULTIVITAMIN ADULTS ORAL TABLET [Concomitant]
     Route: 048
  11. ONDANSETRON HCL ORAL TABLET 4 MG [Concomitant]
     Route: 048

REACTIONS (10)
  - Salivary hypersecretion [Unknown]
  - Dizziness [Unknown]
  - Headache [Unknown]
  - Memory impairment [Unknown]
  - Asthenia [Unknown]
  - Confusional state [Unknown]
  - Restlessness [Unknown]
  - Therapeutic product effect incomplete [Unknown]
  - Agitation [Unknown]
  - Somnolence [Unknown]
